FAERS Safety Report 7835900-3 (Version None)
Quarter: 2011Q4

REPORT INFORMATION
  Report Type: 
  Country: None (occurrence: None)
  Receive Date: 20111024
  Receipt Date: 20101117
  Transmission Date: 20120403
  Serious: No
  Sender: FDA-Public Use
  Company Number: US-ABBOTT-10P-163-0686269-00

PATIENT
  Sex: Female
  Weight: 88.076 kg

DRUGS (3)
  1. LUPRON DEPOT [Suspect]
     Indication: UTERINE LEIOMYOMA
  2. LUPRON DEPOT [Suspect]
     Indication: ENDOMETRIOSIS
     Route: 030
     Dates: start: 20100615
  3. NAPROXEN [Concomitant]
     Indication: DYSMENORRHOEA

REACTIONS (1)
  - VAGINAL HAEMORRHAGE [None]
